FAERS Safety Report 20765510 (Version 2)
Quarter: 2022Q2

REPORT INFORMATION
  Report Type: Spontaneous
  Country: US (occurrence: US)
  Receive Date: 20220428
  Receipt Date: 20220519
  Transmission Date: 20220721
  Serious: Yes (Hospitalization, Other)
  Sender: FDA-Public Use
  Company Number: US-TEVA-2022-US-2030240

PATIENT
  Sex: Female

DRUGS (51)
  1. VINORELBINE [Suspect]
     Active Substance: VINORELBINE TARTRATE
     Indication: Adenocarcinoma
     Route: 065
  2. VINORELBINE [Suspect]
     Active Substance: VINORELBINE TARTRATE
     Indication: Non-small cell lung cancer metastatic
  3. VINORELBINE [Suspect]
     Active Substance: VINORELBINE TARTRATE
     Indication: Metastases to lymph nodes
  4. VINORELBINE [Suspect]
     Active Substance: VINORELBINE TARTRATE
     Indication: Metastases to liver
  5. VINORELBINE [Suspect]
     Active Substance: VINORELBINE TARTRATE
     Indication: Metastases to central nervous system
  6. VINORELBINE [Suspect]
     Active Substance: VINORELBINE TARTRATE
     Indication: Metastases to bone
  7. PEMETREXED [Suspect]
     Active Substance: PEMETREXED
     Indication: Adenocarcinoma
     Dosage: RECHALLENGE
     Route: 065
  8. PEMETREXED [Suspect]
     Active Substance: PEMETREXED
     Indication: Non-small cell lung cancer metastatic
     Dosage: 3 CYCLES OF RECHALLENGE
     Route: 065
  9. PEMETREXED [Suspect]
     Active Substance: PEMETREXED
     Indication: Metastases to lymph nodes
  10. PEMETREXED [Suspect]
     Active Substance: PEMETREXED
     Indication: Metastases to liver
  11. PEMETREXED [Suspect]
     Active Substance: PEMETREXED
     Indication: Metastases to bone
  12. CRIZOTINIB [Suspect]
     Active Substance: CRIZOTINIB
     Indication: Adenocarcinoma
     Dosage: A CLINICAL TRIAL
     Route: 065
     Dates: start: 201106
  13. CRIZOTINIB [Suspect]
     Active Substance: CRIZOTINIB
     Indication: Non-small cell lung cancer metastatic
  14. CRIZOTINIB [Suspect]
     Active Substance: CRIZOTINIB
     Indication: Metastases to lymph nodes
  15. CRIZOTINIB [Suspect]
     Active Substance: CRIZOTINIB
     Indication: Metastases to liver
  16. CRIZOTINIB [Suspect]
     Active Substance: CRIZOTINIB
     Indication: Metastases to bone
  17. CERITINIB [Suspect]
     Active Substance: CERITINIB
     Indication: Adenocarcinoma
     Route: 065
  18. CERITINIB [Suspect]
     Active Substance: CERITINIB
     Indication: Non-small cell lung cancer metastatic
  19. CERITINIB [Suspect]
     Active Substance: CERITINIB
     Indication: Metastases to lymph nodes
  20. CERITINIB [Suspect]
     Active Substance: CERITINIB
     Indication: Metastases to liver
  21. CERITINIB [Suspect]
     Active Substance: CERITINIB
     Indication: Metastases to bone
  22. ALECTINIB [Suspect]
     Active Substance: ALECTINIB
     Indication: Adenocarcinoma
     Route: 065
  23. ALECTINIB [Suspect]
     Active Substance: ALECTINIB
     Indication: Non-small cell lung cancer metastatic
  24. ALECTINIB [Suspect]
     Active Substance: ALECTINIB
     Indication: Metastases to lymph nodes
  25. ALECTINIB [Suspect]
     Active Substance: ALECTINIB
     Indication: Metastases to liver
  26. ALECTINIB [Suspect]
     Active Substance: ALECTINIB
     Indication: Metastases to bone
  27. BRIGATINIB [Suspect]
     Active Substance: BRIGATINIB
     Indication: Adenocarcinoma
     Route: 065
  28. BRIGATINIB [Suspect]
     Active Substance: BRIGATINIB
     Indication: Non-small cell lung cancer metastatic
  29. BRIGATINIB [Suspect]
     Active Substance: BRIGATINIB
     Indication: Metastases to lymph nodes
  30. BRIGATINIB [Suspect]
     Active Substance: BRIGATINIB
     Indication: Metastases to liver
  31. BRIGATINIB [Suspect]
     Active Substance: BRIGATINIB
     Indication: Metastases to bone
  32. LORLATINIB [Suspect]
     Active Substance: LORLATINIB
     Indication: Adenocarcinoma
     Route: 065
     Dates: start: 202002
  33. LORLATINIB [Suspect]
     Active Substance: LORLATINIB
     Indication: Non-small cell lung cancer metastatic
  34. LORLATINIB [Suspect]
     Active Substance: LORLATINIB
     Indication: Metastases to lymph nodes
  35. LORLATINIB [Suspect]
     Active Substance: LORLATINIB
     Indication: Metastases to liver
  36. LORLATINIB [Suspect]
     Active Substance: LORLATINIB
     Indication: Metastases to bone
  37. CARBOPLATIN [Concomitant]
     Active Substance: CARBOPLATIN
     Indication: Adenocarcinoma
     Dosage: RECHALLENGE
     Route: 065
  38. CARBOPLATIN [Concomitant]
     Active Substance: CARBOPLATIN
     Indication: Non-small cell lung cancer metastatic
  39. CARBOPLATIN [Concomitant]
     Active Substance: CARBOPLATIN
     Indication: Metastases to lymph nodes
  40. CARBOPLATIN [Concomitant]
     Active Substance: CARBOPLATIN
     Indication: Metastases to liver
  41. CARBOPLATIN [Concomitant]
     Active Substance: CARBOPLATIN
     Indication: Metastases to bone
  42. ATEZOLIZUMAB [Concomitant]
     Active Substance: ATEZOLIZUMAB
     Indication: Adenocarcinoma
     Route: 065
  43. ATEZOLIZUMAB [Concomitant]
     Active Substance: ATEZOLIZUMAB
     Indication: Non-small cell lung cancer metastatic
  44. ATEZOLIZUMAB [Concomitant]
     Active Substance: ATEZOLIZUMAB
     Indication: Metastases to lymph nodes
  45. ATEZOLIZUMAB [Concomitant]
     Active Substance: ATEZOLIZUMAB
     Indication: Metastases to liver
  46. ATEZOLIZUMAB [Concomitant]
     Active Substance: ATEZOLIZUMAB
     Indication: Metastases to bone
  47. DOCETAXEL [Concomitant]
     Active Substance: DOCETAXEL
     Indication: Adenocarcinoma
     Route: 065
  48. DOCETAXEL [Concomitant]
     Active Substance: DOCETAXEL
     Indication: Non-small cell lung cancer metastatic
  49. DOCETAXEL [Concomitant]
     Active Substance: DOCETAXEL
     Indication: Metastases to lymph nodes
  50. DOCETAXEL [Concomitant]
     Active Substance: DOCETAXEL
     Indication: Metastases to liver
  51. DOCETAXEL [Concomitant]
     Active Substance: DOCETAXEL
     Indication: Metastases to bone

REACTIONS (2)
  - Drug resistance [Unknown]
  - Drug ineffective [Unknown]
